FAERS Safety Report 18098225 (Version 1)
Quarter: 2020Q3

REPORT INFORMATION
  Report Type: Spontaneous
  Country: DE (occurrence: DE)
  Receive Date: 20200731
  Receipt Date: 20200731
  Transmission Date: 20201103
  Serious: Yes (Other)
  Sender: FDA-Public Use
  Company Number: NVSC2020DE208370

PATIENT
  Sex: Female
  Weight: 89 kg

DRUGS (1)
  1. ASPIRIN. [Suspect]
     Active Substance: ASPIRIN
     Indication: PRODUCT USED FOR UNKNOWN INDICATION
     Dosage: UNK (LOW)
     Route: 065

REACTIONS (6)
  - Maternal exposure during pregnancy [Unknown]
  - Discomfort [Unknown]
  - Thrombosis [Unknown]
  - Peripheral swelling [Unknown]
  - Muscular weakness [Unknown]
  - Varicose vein [Unknown]

NARRATIVE: CASE EVENT DATE: 20200705
